FAERS Safety Report 10598416 (Version 2)
Quarter: 2014Q4

REPORT INFORMATION
  Report Type: Spontaneous
  Country: US (occurrence: US)
  Receive Date: 20141121
  Receipt Date: 20141219
  Transmission Date: 20150529
  Serious: Yes (Hospitalization, Other)
  Sender: FDA-Public Use
  Company Number: US-BAYER-2014-172302

PATIENT
  Age: 23 Year
  Sex: Female
  Weight: 81.63 kg

DRUGS (1)
  1. MIRENA [Suspect]
     Active Substance: LEVONORGESTREL
     Indication: CONTRACEPTION
     Dosage: 20 MCG/24HR, CONT
     Route: 015
     Dates: start: 20090814, end: 20100820

REACTIONS (13)
  - Emotional distress [None]
  - Pelvic pain [None]
  - Abdominal pain [None]
  - Depressed mood [None]
  - Fear [None]
  - Off label use [None]
  - Uterine perforation [None]
  - Anxiety [None]
  - Injury [None]
  - Depression [None]
  - Internal injury [None]
  - Genital haemorrhage [None]
  - Medical device discomfort [None]

NARRATIVE: CASE EVENT DATE: 200908
